FAERS Safety Report 6858594-2 (Version None)
Quarter: 2010Q3

REPORT INFORMATION
  Report Type: 
  Country: None (occurrence: None)
  Receive Date: 20100719
  Receipt Date: 20080414
  Transmission Date: 20110219
  Serious: No
  Sender: FDA-Public Use
  Company Number: US-PFIZER INC-2008012869

PATIENT
  Sex: Female
  Weight: 67.1 kg

DRUGS (7)
  1. CHANTIX [Suspect]
     Indication: SMOKING CESSATION THERAPY
     Route: 048
     Dates: start: 20071001
  2. CELEBREX [Concomitant]
     Dates: start: 20071001
  3. LITHIUM CARBONATE [Concomitant]
     Indication: BIPOLAR DISORDER
     Dates: start: 19920101
  4. CRESTOR [Concomitant]
  5. LORAZEPAM [Concomitant]
     Indication: BIPOLAR DISORDER
  6. LITHIUM CARBONATE [Concomitant]
     Dates: start: 19920101
  7. TOPAMAX [Concomitant]

REACTIONS (4)
  - BLOOD CALCIUM INCREASED [None]
  - INSOMNIA [None]
  - NAUSEA [None]
  - PARATHYROID DISORDER [None]
